FAERS Safety Report 12473087 (Version 3)
Quarter: 2016Q3

REPORT INFORMATION
  Report Type: Spontaneous
  Country: DK (occurrence: DK)
  Receive Date: 20160616
  Receipt Date: 20160830
  Transmission Date: 20161109
  Serious: Yes (Death)
  Sender: FDA-Public Use
  Company Number: PHHY2016DK081714

PATIENT
  Age: 47 Year
  Sex: Male
  Weight: 52 kg

DRUGS (15)
  1. MULTI VIT [Concomitant]
     Indication: PRODUCT USED FOR UNKNOWN INDICATION
  2. MAXIDEX//DEXAMETHASONE [Concomitant]
     Indication: IRIDOCYCLITIS
     Route: 065
  3. PANTOPRAZOLE [Concomitant]
     Active Substance: PANTOPRAZOLE SODIUM
     Indication: GASTROOESOPHAGEAL REFLUX DISEASE
     Route: 065
  4. FENTANYL. [Concomitant]
     Active Substance: FENTANYL
     Indication: PAIN
     Route: 065
  5. KALEORID [Concomitant]
     Active Substance: POTASSIUM CHLORIDE
     Indication: MINERAL SUPPLEMENTATION
     Dosage: 750 MG, UNK
     Route: 065
  6. CENTYL [Concomitant]
     Active Substance: BENDROFLUMETHIAZIDE
     Indication: HYPERTENSION
     Route: 065
  7. OXYNORM [Concomitant]
     Active Substance: OXYCODONE HYDROCHLORIDE
     Indication: PAIN
     Route: 065
  8. FLAMAZINE [Concomitant]
     Active Substance: SILVER SULFADIAZINE
     Indication: SKIN INFECTION
     Route: 065
  9. CHLORZOXAZONE ^DAK^ [Concomitant]
     Indication: MUSCLE SPASMS
     Dosage: 250 MG, UNK
     Route: 065
  10. AMLODIPIN//AMLODIPINE [Concomitant]
     Indication: HYPERTENSION
     Route: 065
  11. UNIKALK BASIC [Concomitant]
     Indication: VITAMIN D DEFICIENCY
     Route: 065
  12. COSENTYX [Suspect]
     Active Substance: SECUKINUMAB
     Indication: JUVENILE IDIOPATHIC ARTHRITIS
     Route: 058
     Dates: start: 20160513
  13. ULTRACORTENOL-ACETAT [Concomitant]
     Indication: IRIDOCYCLITIS
     Route: 065
  14. IBUPROFEN. [Concomitant]
     Active Substance: IBUPROFEN
     Indication: PAIN
     Route: 065
  15. FRESUBIN                           /07459901/ [Concomitant]
     Indication: PRODUCT USED FOR UNKNOWN INDICATION
     Route: 065

REACTIONS (1)
  - Death [Fatal]

NARRATIVE: CASE EVENT DATE: 20160525
